FAERS Safety Report 4637173-1 (Version None)
Quarter: 2005Q2

REPORT INFORMATION
  Report Type: 
  Country: None (occurrence: None)
  Receive Date: 20050325
  Receipt Date: 20041209
  Transmission Date: 20051028
  Serious: No
  Sender: FDA-Public Use
  Company Number: USA040978681

PATIENT
  Age: 81 Year
  Sex: Female

DRUGS (6)
  1. FORTEO [Suspect]
     Indication: OSTEOPOROSIS
     Dates: start: 20040801, end: 20041108
  2. CALCIUM GLUCONATE [Concomitant]
  3. VITAMINS NOS [Concomitant]
  4. PROVIGIL [Concomitant]
  5. ZANTAC [Concomitant]
  6. ZYRTEC [Concomitant]

REACTIONS (8)
  - BALANCE DISORDER [None]
  - BLOOD CALCIUM INCREASED [None]
  - DISORIENTATION [None]
  - DIZZINESS [None]
  - HEADACHE [None]
  - MUSCLE DISORDER [None]
  - MUSCLE SPASMS [None]
  - NAUSEA [None]
